FAERS Safety Report 21596038 (Version 2)
Quarter: 2022Q4

REPORT INFORMATION
  Report Type: Spontaneous
  Country: US (occurrence: US)
  Receive Date: 20221115
  Receipt Date: 20221117
  Transmission Date: 20230113
  Serious: Yes (Life-Threatening, Hospitalization)
  Sender: FDA-Public Use
  Company Number: US-BRISTOL-MYERS SQUIBB COMPANY-2022-137210

PATIENT
  Age: 71 Year
  Sex: Male
  Weight: 81.19 kg

DRUGS (1)
  1. REVLIMID [Suspect]
     Active Substance: LENALIDOMIDE
     Indication: Plasma cell myeloma
     Dosage: FREQ - 14D ON 14D OFF
     Route: 048
     Dates: start: 20221113, end: 20221114

REACTIONS (3)
  - Abdominal pain lower [Unknown]
  - Off label use [Unknown]
  - Abdominal pain upper [Unknown]
